FAERS Safety Report 9358041 (Version 3)
Quarter: 2013Q4

REPORT INFORMATION
  Report Type: Spontaneous
  Country: US (occurrence: US)
  Receive Date: 20130620
  Receipt Date: 20131121
  Transmission Date: 20140711
  Serious: No
  Sender: FDA-Public Use
  Company Number: US-PFIZER INC-2013181046

PATIENT
  Age: 46 Year
  Sex: Female
  Weight: 78.01 kg

DRUGS (3)
  1. ADVIL PM [Suspect]
     Indication: SLEEP DISORDER
     Dosage: 2 TABLETS, ONCE DAILY (AT NIGHT)
     Dates: start: 2013, end: 201306
  2. ADVIL PM [Suspect]
     Dosage: 400/76MG (TWO TABLETS OF 200/38MG), UNK
     Route: 048
     Dates: start: 20130923, end: 20130925
  3. PROPANOLOL [Concomitant]
     Dosage: 40 MG, TWO TIMES A DAY

REACTIONS (3)
  - Expired drug administered [Unknown]
  - Overdose [Unknown]
  - Drug ineffective [Unknown]
